FAERS Safety Report 7390552-4 (Version None)
Quarter: 2011Q2

REPORT INFORMATION
  Report Type: 
  Country: None (occurrence: None)
  Receive Date: 20110403
  Receipt Date: 20110330
  Transmission Date: 20111010
  Serious: Yes (Hospitalization)
  Sender: FDA-Public Use
  Company Number: DE-BRISTOL-MYERS SQUIBB COMPANY-15646854

PATIENT
  Age: 79 Year
  Sex: Male
  Weight: 77 kg

DRUGS (3)
  1. NECITUMUMAB [Suspect]
     Dosage: LAST DOSE ON 23FEB11
     Dates: start: 20101230
  2. CISPLATIN [Suspect]
     Dosage: LAST DOSE:27JAN11
     Dates: start: 20101230
  3. PEMETREXED DISODIUM [Suspect]
     Dosage: LAST DOSE:27JAN11
     Dates: start: 20101230

REACTIONS (1)
  - DUODENAL ULCER [None]
